FAERS Safety Report 13862672 (Version 2)
Quarter: 2017Q3

REPORT INFORMATION
  Report Type: Spontaneous
  Country: FR (occurrence: FR)
  Receive Date: 20170814
  Receipt Date: 20170906
  Transmission Date: 20171127
  Serious: Yes (Life-Threatening)
  Sender: FDA-Public Use
  Company Number: FR-009507513-1708FRA005564

PATIENT
  Age: 54 Year
  Sex: Female

DRUGS (3)
  1. STROMECTOL [Suspect]
     Active Substance: IVERMECTIN
     Dosage: 5 DF (TABLETS)
     Route: 048
     Dates: start: 20170713
  2. STROMECTOL [Suspect]
     Active Substance: IVERMECTIN
     Indication: ACARODERMATITIS
     Dosage: 5 DF (TABLETS)
     Route: 048
     Dates: start: 20170709
  3. AERIUS [Concomitant]
     Active Substance: DESLORATADINE
     Indication: PRURITUS
     Dosage: UNK
     Route: 048
     Dates: start: 20170709

REACTIONS (1)
  - Generalised tonic-clonic seizure [Recovered/Resolved]

NARRATIVE: CASE EVENT DATE: 20170713
